FAERS Safety Report 15825189 (Version 1)
Quarter: 2019Q1

REPORT INFORMATION
  Report Type: Spontaneous
  Country: US (occurrence: US)
  Receive Date: 20190115
  Receipt Date: 20190115
  Transmission Date: 20190417
  Serious: Yes (Hospitalization, Other)
  Sender: FDA-Public Use
  Company Number: None

PATIENT
  Age: 45 Year
  Sex: Female
  Weight: 63 kg

DRUGS (1)
  1. EFFEXOR XR [Suspect]
     Active Substance: VENLAFAXINE HYDROCHLORIDE
     Indication: DEPRESSION
     Dosage: ?          QUANTITY:1 CAPSULE(S);?
     Route: 048
     Dates: start: 20181127, end: 20190106

REACTIONS (13)
  - Dry mouth [None]
  - Libido decreased [None]
  - Tachycardia [None]
  - Rectal haemorrhage [None]
  - Gait disturbance [None]
  - Vision blurred [None]
  - Asthenia [None]
  - Haemoglobin decreased [None]
  - Presyncope [None]
  - Fatigue [None]
  - Hypoaesthesia [None]
  - Dizziness [None]
  - Haemorrhage [None]

NARRATIVE: CASE EVENT DATE: 20181218
